FAERS Safety Report 23085181 (Version 1)
Quarter: 2023Q4

REPORT INFORMATION
  Report Type: Spontaneous
  Country: US (occurrence: None)
  Receive Date: 20231019
  Receipt Date: 20231019
  Transmission Date: 20240110
  Serious: Yes (Disabling, Other)
  Sender: FDA-Public Use
  Company Number: None

PATIENT
  Age: 22 Year
  Sex: Female

DRUGS (2)
  1. SERTRALINE [Suspect]
     Active Substance: SERTRALINE HYDROCHLORIDE
     Indication: Depression
     Dosage: OTHER QUANTITY : 3 TABLET(S);?
     Route: 048
     Dates: start: 20221115
  2. Prenatal multivitamin [Concomitant]

REACTIONS (7)
  - Menstrual disorder [None]
  - Heavy menstrual bleeding [None]
  - Muscle spasms [None]
  - Asthenia [None]
  - Infertility [None]
  - Polycystic ovaries [None]
  - Hormone level abnormal [None]

NARRATIVE: CASE EVENT DATE: 20221115
